FAERS Safety Report 6018513-8 (Version None)
Quarter: 2008Q4

REPORT INFORMATION
  Report Type: 
  Country: None (occurrence: None)
  Receive Date: 20081219
  Receipt Date: 20080131
  Transmission Date: 20090506
  Serious: Yes (Hospitalization)
  Sender: FDA-Public Use
  Company Number: US200801007104

PATIENT
  Sex: Male

DRUGS (3)
  1. HUMULIN R [Suspect]
  2. NOVOLOG [Concomitant]
  3. LANTUS [Concomitant]

REACTIONS (5)
  - BURNING SENSATION [None]
  - DIABETIC KETOACIDOSIS [None]
  - MUSCLE SPASMS [None]
  - PAIN [None]
  - PRURITUS [None]
